FAERS Safety Report 5088861-7 (Version None)
Quarter: 2006Q3

REPORT INFORMATION
  Report Type: 
  Country: None (occurrence: None)
  Receive Date: 20060824
  Receipt Date: 20060824
  Transmission Date: 20061208
  Serious: No
  Sender: FDA-Public Use
  Company Number: None

PATIENT
  Sex: Male
  Weight: 99.7913 kg

DRUGS (1)
  1. INDOMETHACIN 50MG CAP [Suspect]
     Indication: ANKYLOSING SPONDYLITIS
     Dosage: 50 MG 2 DAILY
     Dates: start: 20060712, end: 20060726

REACTIONS (4)
  - DRUG INEFFECTIVE [None]
  - MALAISE [None]
  - SPONDYLITIS [None]
  - THERAPEUTIC RESPONSE UNEXPECTED WITH DRUG SUBSTITUTION [None]
